FAERS Safety Report 9332649 (Version 1)
Quarter: 2013Q2

REPORT INFORMATION
  Report Type: Spontaneous
  Country: IT (occurrence: None)
  Receive Date: 20130603
  Receipt Date: 20130603
  Transmission Date: 20140414
  Serious: Yes (Hospitalization)
  Sender: FDA-Public Use
  Company Number: IT-022714

PATIENT
  Age: 82 Year
  Sex: Female

DRUGS (3)
  1. BUSULFAN [Suspect]
     Indication: THROMBOCYTOSIS
     Route: 048
     Dates: start: 20100323, end: 20110322
  2. CARDIOASPIRIN [Suspect]
     Indication: PRODUCT USED FOR UNKNOWN INDICATION
     Dates: start: 20100323, end: 20110322
  3. SOLOSA [Concomitant]

REACTIONS (3)
  - Haematemesis [None]
  - Melaena [None]
  - Blood urea increased [None]
